FAERS Safety Report 5052613-4 (Version None)
Quarter: 2006Q3

REPORT INFORMATION
  Report Type: 
  Country: None (occurrence: None)
  Receive Date: 20060717
  Receipt Date: 20060712
  Transmission Date: 20061208
  Serious: Yes (Death, Other)
  Sender: FDA-Public Use
  Company Number: 453724

PATIENT
  Age: 84 Year
  Sex: Male

DRUGS (6)
  1. CARVEDILOL [Suspect]
     Indication: MYOCARDIAL INFARCTION
     Route: 048
     Dates: start: 20031118, end: 20031224
  2. METILDIGOXIN [Suspect]
     Indication: DRUG USE FOR UNKNOWN INDICATION
     Dosage: .1MG PER DAY
     Route: 048
     Dates: start: 20031109, end: 20031223
  3. ASPIRIN [Concomitant]
     Dates: start: 20031106, end: 20031223
  4. SIGMART [Concomitant]
     Dates: start: 20031106, end: 20031223
  5. DIART [Concomitant]
     Dates: start: 20031111, end: 20031223
  6. ALDACTONE [Concomitant]
     Dates: start: 20031111, end: 20031223

REACTIONS (2)
  - DEATH [None]
  - SINUS ARREST [None]
